APPROVED DRUG PRODUCT: FLUOCINONIDE
Active Ingredient: FLUOCINONIDE
Strength: 0.05%
Dosage Form/Route: CREAM;TOPICAL
Application: A072488 | Product #001 | TE Code: AB1
Applicant: TEVA PHARMACEUTICALS USA INC
Approved: Feb 6, 1989 | RLD: No | RS: No | Type: RX